FAERS Safety Report 13701424 (Version 14)
Quarter: 2018Q3

REPORT INFORMATION
  Report Type: Spontaneous
  Country: US (occurrence: US)
  Receive Date: 20170629
  Receipt Date: 20180827
  Transmission Date: 20181010
  Serious: Yes (Other)
  Sender: FDA-Public Use
  Company Number: US-INCYTE CORPORATION-2017IN004963

PATIENT

DRUGS (25)
  1. JAKAFI [Suspect]
     Active Substance: RUXOLITINIB
     Dosage: 20 MG, BID (10 MG TABLETS)
     Route: 065
  2. ATENOLOL. [Concomitant]
     Active Substance: ATENOLOL
     Indication: PRODUCT USED FOR UNKNOWN INDICATION
     Dosage: UNK
     Route: 065
  3. LEVOTHYROXINE. [Concomitant]
     Active Substance: LEVOTHYROXINE
     Indication: PRODUCT USED FOR UNKNOWN INDICATION
     Dosage: UNK
     Route: 065
  4. LOVASTATIN. [Concomitant]
     Active Substance: LOVASTATIN
     Indication: PRODUCT USED FOR UNKNOWN INDICATION
     Dosage: UNK
     Route: 065
  5. JAKAFI [Suspect]
     Active Substance: RUXOLITINIB
     Dosage: 20 MG, BID (TWO 10 MG TABLETS, BID)
     Route: 048
     Dates: start: 201706
  6. JAKAFI [Suspect]
     Active Substance: RUXOLITINIB
     Dosage: 10 MG QAM AND 20 MG QPM (10 MG TABLETS)
     Route: 065
  7. HYDROXYUREA. [Suspect]
     Active Substance: HYDROXYUREA
     Indication: PRODUCT USED FOR UNKNOWN INDICATION
     Dosage: UNK
     Route: 065
     Dates: start: 2011
  8. HYDROCHLOROTHIAZIDE. [Concomitant]
     Active Substance: HYDROCHLOROTHIAZIDE
     Indication: PRODUCT USED FOR UNKNOWN INDICATION
     Dosage: UNK
     Route: 065
  9. NITROGLYCERIN. [Concomitant]
     Active Substance: NITROGLYCERIN
     Indication: PRODUCT USED FOR UNKNOWN INDICATION
     Route: 065
  10. JAKAFI [Suspect]
     Active Substance: RUXOLITINIB
     Dosage: 20 MG, BID
     Route: 048
  11. JAKAFI [Suspect]
     Active Substance: RUXOLITINIB
     Dosage: 20 MG, BID
     Route: 048
  12. JAKAFI [Suspect]
     Active Substance: RUXOLITINIB
     Dosage: 20 MG BID (2 X 10 MG TABLETS)
     Route: 065
  13. SIMVASTATIN. [Concomitant]
     Active Substance: SIMVASTATIN
     Indication: PRODUCT USED FOR UNKNOWN INDICATION
     Dosage: UNK
     Route: 065
  14. BABY ASPIRIN [Concomitant]
     Active Substance: ASPIRIN
     Indication: PRODUCT USED FOR UNKNOWN INDICATION
     Dosage: UNK
     Route: 065
  15. ALBUTEROL                          /00139501/ [Concomitant]
     Active Substance: ALBUTEROL
     Indication: PRODUCT USED FOR UNKNOWN INDICATION
     Route: 065
  16. METFORMIN [Concomitant]
     Active Substance: METFORMIN HYDROCHLORIDE
     Indication: PRODUCT USED FOR UNKNOWN INDICATION
     Dosage: UNK, UNK, BID
     Route: 065
  17. JAKAFI [Suspect]
     Active Substance: RUXOLITINIB
     Indication: POLYCYTHAEMIA VERA
     Dosage: 30 MG, QD (TWO 10 MG TABLETS QAM + ONE 10 MG TABLET QPM)
     Route: 048
     Dates: start: 20170604
  18. JAKAFI [Suspect]
     Active Substance: RUXOLITINIB
     Dosage: 20 MG, BID (TWO 10 MG TABLETS, BID)
     Route: 048
     Dates: start: 20170706
  19. JAKAFI [Suspect]
     Active Substance: RUXOLITINIB
     Dosage: 10 MG, BID
     Route: 048
     Dates: start: 201706
  20. JAKAFI [Suspect]
     Active Substance: RUXOLITINIB
     Dosage: 20 MG, BID
     Route: 065
  21. THYROID [Concomitant]
     Active Substance: LEVOTHYROXINE\LIOTHYRONINE
     Indication: PRODUCT USED FOR UNKNOWN INDICATION
     Dosage: UNK
     Route: 065
  22. JAKAFI [Suspect]
     Active Substance: RUXOLITINIB
     Dosage: 20 MG BID (TWO 10 MG TABLETS IN AM + TWO 10 MG TABLETS IN PM)
     Route: 048
     Dates: start: 2017
  23. JAKAFI [Suspect]
     Active Substance: RUXOLITINIB
     Dosage: 30 MG, QD (TWO 10 MG TABLETS QAM + ONE 10 MG TABLET QPM)
     Route: 048
     Dates: start: 201707
  24. JAKAFI [Suspect]
     Active Substance: RUXOLITINIB
     Dosage: 20 MG BID (TWO 10 MG TABLETS IN AM + TWO 10 MG TABLETS IN PM)
     Route: 048
     Dates: start: 20170828
  25. ASPIRIN                            /00002701/ [Suspect]
     Active Substance: ASPIRIN
     Indication: PRODUCT USED FOR UNKNOWN INDICATION
     Dosage: UNK
     Route: 065

REACTIONS (33)
  - Gait inability [Recovering/Resolving]
  - Loss of personal independence in daily activities [Unknown]
  - Feeling abnormal [Unknown]
  - Weight increased [Unknown]
  - Lung disorder [Unknown]
  - Pneumonia [Unknown]
  - Fall [Recovering/Resolving]
  - Joint swelling [Recovering/Resolving]
  - White blood cell count increased [Not Recovered/Not Resolved]
  - Incorrect dose administered [Unknown]
  - Dizziness [Recovering/Resolving]
  - Loss of consciousness [Not Recovered/Not Resolved]
  - Weight decreased [Unknown]
  - Lower respiratory tract infection [Not Recovered/Not Resolved]
  - Skin haemorrhage [Not Recovered/Not Resolved]
  - Fatigue [Unknown]
  - Cough [Unknown]
  - Amnesia [Unknown]
  - Therapeutic response unexpected [Unknown]
  - Pulmonary congestion [Unknown]
  - Rash [Unknown]
  - Gait disturbance [Unknown]
  - Bedridden [Unknown]
  - Dyspnoea exertional [Not Recovered/Not Resolved]
  - Skin cancer [Not Recovered/Not Resolved]
  - Haemorrhage [Unknown]
  - Balance disorder [Unknown]
  - Scab [Unknown]
  - Blood pressure decreased [Unknown]
  - Pruritus [Unknown]
  - Head injury [Unknown]
  - Asthenia [Unknown]
  - Dyspnoea [Not Recovered/Not Resolved]

NARRATIVE: CASE EVENT DATE: 20170621
